FAERS Safety Report 12965599 (Version 2)
Quarter: 2017Q1

REPORT INFORMATION
  Report Type: Report from Study
  Country: AU (occurrence: AU)
  Receive Date: 20161122
  Receipt Date: 20170131
  Transmission Date: 20170428
  Serious: Yes (Hospitalization)
  Sender: FDA-Public Use
  Company Number: AU-ALEXION PHARMACEUTICALS INC.-A201608417

PATIENT
  Age: 26 Year
  Sex: Female
  Weight: 120 kg

DRUGS (41)
  1. OMEPRAZOLE. [Concomitant]
     Active Substance: OMEPRAZOLE
     Indication: GASTROOESOPHAGEAL REFLUX DISEASE
     Dosage: 20 MG, QD
     Route: 048
     Dates: start: 20120703
  2. MYCOPHENOLATE MOFETIL. [Concomitant]
     Active Substance: MYCOPHENOLATE MOFETIL
     Indication: IMMUNOSUPPRESSION
     Dosage: 180 MG, BID
     Route: 048
     Dates: start: 20150424
  3. METOPROLOL. [Concomitant]
     Active Substance: METOPROLOL
     Dosage: 25 MG, BID
     Route: 048
     Dates: start: 20161111
  4. PREDNISOLONE. [Concomitant]
     Active Substance: PREDNISOLONE
     Indication: IMMUNOSUPPRESSION
     Dosage: 8 MG, QD
     Route: 048
     Dates: start: 20151224
  5. CLARITHROMYCIN. [Concomitant]
     Active Substance: CLARITHROMYCIN
     Indication: UPPER RESPIRATORY TRACT INFECTION
     Dosage: 250 MG, BID
     Route: 048
     Dates: start: 20161011, end: 20161017
  6. METOPROLOL. [Concomitant]
     Active Substance: METOPROLOL
     Dosage: 50 MG, BID
     Route: 048
     Dates: start: 2016, end: 20161110
  7. PREDNISOLONE. [Concomitant]
     Active Substance: PREDNISOLONE
     Dosage: 6 MG, QD
     Route: 048
     Dates: start: 20161111
  8. CALCIUM CARBONATE. [Concomitant]
     Active Substance: CALCIUM CARBONATE
     Dosage: 600 MG, QD
     Route: 048
     Dates: start: 20161101
  9. CALCITRIOL. [Concomitant]
     Active Substance: CALCITRIOL
     Dosage: 0.25 ?G, QD
     Route: 048
     Dates: start: 20161101
  10. ECULIZUMAB [Suspect]
     Active Substance: ECULIZUMAB
     Indication: HAEMOLYTIC URAEMIC SYNDROME
     Dosage: 1200 MG, Q2W
     Route: 042
     Dates: start: 20151021, end: 20151021
  11. ECULIZUMAB [Suspect]
     Active Substance: ECULIZUMAB
     Dosage: 1200 MG, Q2W
     Route: 042
     Dates: start: 20160929, end: 20160929
  12. LERCANIDIPINE [Concomitant]
     Active Substance: LERCANIDIPINE
     Indication: HYPERTENSION
     Dosage: 20 MG, QD
     Route: 048
     Dates: start: 20150225, end: 20160929
  13. METOPROLOL. [Concomitant]
     Active Substance: METOPROLOL
     Indication: HYPERTENSION
     Dosage: 75 MG, BID
     Route: 048
  14. PANTOPRAZOLE [Concomitant]
     Active Substance: PANTOPRAZOLE SODIUM
     Indication: GASTROOESOPHAGEAL REFLUX DISEASE
     Dosage: 40 MG, QD
     Route: 048
     Dates: start: 20151228
  15. HEPARIN [Concomitant]
     Active Substance: HEPARIN SODIUM
     Indication: THROMBOSIS PROPHYLAXIS
     Dosage: 5000 IU, BID
     Route: 058
     Dates: start: 20160625
  16. CALSOURCE CA1000 [Concomitant]
     Dosage: 1000 MG, TID
     Route: 048
     Dates: start: 20160718
  17. BUPRENORPHINE. [Concomitant]
     Active Substance: BUPRENORPHINE
     Indication: HIP ARTHROPLASTY
     Dosage: 0.2 MG, PRN
     Route: 060
     Dates: start: 20160730, end: 20161111
  18. CALCIUM CARBONATE. [Concomitant]
     Active Substance: CALCIUM CARBONATE
     Indication: MINERAL SUPPLEMENTATION
     Dosage: 600 MG, BID
     Route: 048
     Dates: start: 20160730, end: 20161027
  19. SODIUM BICARBONATE. [Concomitant]
     Active Substance: SODIUM BICARBONATE
     Indication: ACID BASE BALANCE
     Dosage: 840 MG, BID
     Route: 048
     Dates: start: 20160126
  20. CALCITRIOL. [Concomitant]
     Active Substance: CALCITRIOL
     Indication: HYPOCALCAEMIA
     Dosage: 0.25 ?G, BID
     Route: 048
     Dates: start: 20160804, end: 20161013
  21. ELOCON [Concomitant]
     Active Substance: MOMETASONE FUROATE
     Indication: NEURODERMATITIS
     Dosage: 45 G, QD
     Route: 061
     Dates: start: 201605, end: 20161111
  22. RESPRIM [Concomitant]
     Indication: ANTIBIOTIC PROPHYLAXIS
     Dosage: 80/400 MG, QD
     Route: 048
     Dates: start: 20130508, end: 20160929
  23. PREDNISOLONE. [Concomitant]
     Active Substance: PREDNISOLONE
     Dosage: 7 MG, QD
     Route: 048
     Dates: start: 20160922, end: 20161110
  24. TACROLIMUS. [Concomitant]
     Active Substance: TACROLIMUS
     Indication: IMMUNOSUPPRESSION
     Dosage: 4 MG, BID
     Route: 048
     Dates: start: 20160606, end: 201606
  25. TACROLIMUS. [Concomitant]
     Active Substance: TACROLIMUS
     Dosage: 2 MG, BID
     Route: 048
     Dates: start: 20161027
  26. FERROSIG [Concomitant]
     Indication: ANAEMIA
     Dosage: 100 MG, QW
     Route: 042
     Dates: start: 20160721
  27. PARACETAMOL [Concomitant]
     Active Substance: ACETAMINOPHEN
     Indication: SEPSIS
     Dosage: 1 G, PRN
     Route: 048
     Dates: start: 20161028, end: 20161028
  28. RESPRIM [Concomitant]
     Dosage: 80/400 MG, TIW
     Route: 048
     Dates: start: 20160929
  29. CITALOPRAM [Concomitant]
     Active Substance: CITALOPRAM HYDROBROMIDE
     Indication: MOOD ALTERED
     Dosage: 20 MG, QD
     Route: 048
     Dates: start: 20140116
  30. DIAMICRON [Concomitant]
     Active Substance: GLICLAZIDE
     Dosage: 120 MG, QD
     Route: 048
     Dates: start: 20160929
  31. HEXAMINE HIPPURATE [Concomitant]
     Indication: URINARY TRACT INFECTION
     Dosage: 1 G, BID
     Route: 048
     Dates: start: 20160126
  32. RANITIDINE. [Concomitant]
     Active Substance: RANITIDINE
     Indication: GASTROOESOPHAGEAL REFLUX DISEASE
     Dosage: 150 MG, BID
     Route: 048
     Dates: start: 20160323
  33. PARACETAMOL [Concomitant]
     Active Substance: ACETAMINOPHEN
     Indication: ARTHRALGIA
     Dosage: 1000 MG, QID
     Route: 048
     Dates: start: 20160727, end: 20161111
  34. OSTELIN                            /00107901/ [Concomitant]
     Indication: VITAMIN SUPPLEMENTATION
     Dosage: 25 ?G, QD
     Route: 048
     Dates: start: 20120126
  35. ASPIRIN                            /00002701/ [Concomitant]
     Active Substance: ASPIRIN
     Indication: THROMBOSIS PROPHYLAXIS
     Dosage: 100 MG, QD
     Route: 048
     Dates: start: 20130618
  36. DIAMICRON [Concomitant]
     Active Substance: GLICLAZIDE
     Dosage: 120 MG, BID
     Route: 048
     Dates: start: 201609, end: 20160928
  37. CALSOURCE CA1000 [Concomitant]
     Indication: MINERAL SUPPLEMENTATION
     Dosage: 1000 MG, BID
     Route: 048
     Dates: start: 20160803
  38. DIAMICRON [Concomitant]
     Active Substance: GLICLAZIDE
     Indication: DIABETES MELLITUS
     Dosage: 120 MG, BID
     Route: 048
     Dates: start: 20150225
  39. METOPROLOL. [Concomitant]
     Active Substance: METOPROLOL
     Dosage: 50 MG, BID
     Route: 048
     Dates: start: 20151224
  40. TACROLIMUS. [Concomitant]
     Active Substance: TACROLIMUS
     Dosage: 3 MG, BID
     Route: 048
     Dates: start: 201606, end: 20161027
  41. NOVICRIT [Concomitant]
     Indication: ANAEMIA
     Dosage: 6000 IU, TWICE PER WEEK
     Route: 042
     Dates: start: 20160802

REACTIONS (1)
  - Sepsis [Recovered/Resolved]

NARRATIVE: CASE EVENT DATE: 20161028
